FAERS Safety Report 9979315 (Version 1)
Quarter: 2014Q1

REPORT INFORMATION
  Report Type: Report from Study
  Country: US (occurrence: US)
  Receive Date: 20140306
  Receipt Date: 20140306
  Transmission Date: 20141002
  Serious: No
  Sender: FDA-Public Use
  Company Number: US-ABBVIE-13P-163-1169653-00

PATIENT
  Age: 64 Year
  Sex: Female
  Weight: 108.05 kg

DRUGS (22)
  1. HUMIRA [Suspect]
     Indication: RHEUMATOID ARTHRITIS
     Route: 058
     Dates: start: 201309
  2. LISINOPRIL [Concomitant]
     Indication: HYPERTENSION
  3. VASCEPA [Concomitant]
     Indication: CARDIOVASCULAR EVENT PROPHYLAXIS
  4. ALLOPURINOL [Concomitant]
     Indication: GOUT
  5. POTASSIUM [Concomitant]
     Indication: MINERAL SUPPLEMENTATION
  6. HYDROCODONE W/APAP [Concomitant]
     Indication: PAIN
  7. ALPRAZOLAM [Concomitant]
     Indication: ANXIETY
  8. TIZANIDINE [Concomitant]
     Indication: MUSCLE SPASMS
  9. ATENOLOL [Concomitant]
     Indication: HYPERTENSION
  10. AMLODIPINE [Concomitant]
     Indication: HYPERTENSION
  11. NITROGLYCERIN [Concomitant]
     Indication: CHEST PAIN
  12. SIMVASTATIN [Concomitant]
     Indication: BLOOD CHOLESTEROL INCREASED
  13. BUPRORION [Concomitant]
     Indication: DEPRESSION
  14. OMEPRAZOLE [Concomitant]
     Indication: GASTROOESOPHAGEAL REFLUX DISEASE
  15. TRAZODONE [Concomitant]
     Indication: INSOMNIA
  16. METHOTREXATE [Concomitant]
     Indication: RHEUMATOID ARTHRITIS
  17. CALCIUM PLUS VITAMIN D [Concomitant]
     Indication: MINERAL SUPPLEMENTATION
  18. VITAMIN D3 [Concomitant]
     Indication: VITAMIN SUPPLEMENTATION
  19. VITAMIN C PLUS ROSE HIPS [Concomitant]
     Indication: PRODUCT USED FOR UNKNOWN INDICATION
  20. VITAMIN B 12 [Concomitant]
     Indication: VITAMIN SUPPLEMENTATION
  21. OCUVITE [Concomitant]
     Indication: VITAMIN SUPPLEMENTATION
  22. FOLIC ACID [Concomitant]
     Indication: VITAMIN SUPPLEMENTATION

REACTIONS (4)
  - Arthropathy [Not Recovered/Not Resolved]
  - Injection site pain [Not Recovered/Not Resolved]
  - Rheumatoid arthritis [Not Recovered/Not Resolved]
  - Pain [Not Recovered/Not Resolved]
